FAERS Safety Report 12164757 (Version 1)
Quarter: 2016Q1

REPORT INFORMATION
  Report Type: Other
  Country: IT (occurrence: FR)
  Receive Date: 20160309
  Receipt Date: 20160309
  Transmission Date: 20160526
  Serious: Yes (Hospitalization)
  Sender: FDA-Public Use
  Company Number: FR-FRI-1000082975

PATIENT
  Age: 86 Year
  Sex: Female
  Weight: 63 kg

DRUGS (2)
  1. NITROFURANTOIN. [Suspect]
     Active Substance: NITROFURANTOIN
     Indication: URINARY TRACT INFECTION
     Dosage: 0.8571 DOSAGE FORMS
     Route: 048
     Dates: start: 201404
  2. FOSFOMYCIN [Suspect]
     Active Substance: FOSFOMYCIN
     Indication: URINARY TRACT INFECTION
     Route: 048
     Dates: start: 201404

REACTIONS (1)
  - Autoimmune hepatitis [Not Recovered/Not Resolved]
